FAERS Safety Report 6917301-5 (Version None)
Quarter: 2010Q3

REPORT INFORMATION
  Report Type: 
  Country: None (occurrence: None)
  Receive Date: 20100810
  Receipt Date: 20100727
  Transmission Date: 20110219
  Serious: Yes (Other)
  Sender: FDA-Public Use
  Company Number: US-ELI_LILLY_AND_COMPANY-US201007007834

PATIENT
  Sex: Female

DRUGS (2)
  1. ZYPREXA [Suspect]
  2. LEXAPRO [Concomitant]

REACTIONS (2)
  - HOMICIDE [None]
  - SUICIDE ATTEMPT [None]
